FAERS Safety Report 18156526 (Version 1)
Quarter: 2020Q3

REPORT INFORMATION
  Report Type: Spontaneous
  Country: US (occurrence: US)
  Receive Date: 20200817
  Receipt Date: 20200817
  Transmission Date: 20201103
  Serious: No
  Sender: FDA-Public Use
  Company Number: US-PFIZER INC-2020315684

PATIENT
  Age: 25 Year
  Sex: Male

DRUGS (2)
  1. ELIDEL [Concomitant]
     Active Substance: PIMECROLIMUS
  2. EUCRISA [Suspect]
     Active Substance: CRISABOROLE
     Indication: ECZEMA
     Dosage: APPLIED TWICE DAILY TO AFFECTED AREAS OF ECZEMA AS NEEDED
     Dates: start: 20200727

REACTIONS (1)
  - Condition aggravated [Unknown]
